FAERS Safety Report 17044323 (Version 1)
Quarter: 2019Q4

REPORT INFORMATION
  Report Type: Spontaneous
  Country: US (occurrence: US)
  Receive Date: 20191116
  Receipt Date: 20191116
  Transmission Date: 20200122
  Serious: Yes (Other)
  Sender: FDA-Public Use
  Company Number: None

PATIENT
  Age: 72 Year
  Sex: Male
  Weight: 83.25 kg

DRUGS (1)
  1. SIMPONI ARIA [Suspect]
     Active Substance: GOLIMUMAB
     Indication: RHEUMATOID ARTHRITIS
     Dosage: ?          QUANTITY:1 INJECTION(S);OTHER FREQUENCY:ONCE A MONTH;OTHER ROUTE:INFUSION?

REACTIONS (7)
  - Skin cancer [None]
  - Blood test abnormal [None]
  - Skin papilloma [None]
  - Lethargy [None]
  - Rheumatoid arthritis [None]
  - Apathy [None]
  - Paradoxical drug reaction [None]

NARRATIVE: CASE EVENT DATE: 20181020
